FAERS Safety Report 12154711 (Version 1)
Quarter: 2016Q1

REPORT INFORMATION
  Report Type: Spontaneous
  Country: US (occurrence: US)
  Receive Date: 20160307
  Receipt Date: 20160307
  Transmission Date: 20160526
  Serious: Yes (Death, Hospitalization)
  Sender: FDA-Public Use
  Company Number: US-WATSON-2016-04830

PATIENT
  Sex: Male

DRUGS (5)
  1. ANDRODERM [Suspect]
     Active Substance: TESTOSTERONE
     Indication: ANDROGEN REPLACEMENT THERAPY
     Dosage: UNKNOWN
     Route: 065
     Dates: start: 201403
  2. ANDRODERM [Suspect]
     Active Substance: TESTOSTERONE
     Dosage: UNKNOWN
     Route: 065
     Dates: start: 200611, end: 200903
  3. TESTOSTERONE ENANTHATE (UNKNOWN) [Suspect]
     Active Substance: TESTOSTERONE ENANTHATE
     Indication: ANDROGEN REPLACEMENT THERAPY
     Dosage: UNKNOWN
     Route: 065
     Dates: start: 200909
  4. ANDROGEL [Suspect]
     Active Substance: TESTOSTERONE
     Indication: ANDROGEN REPLACEMENT THERAPY
     Dosage: UNKNOWN
     Route: 065
     Dates: start: 201209, end: 201309
  5. ANDRODERM [Suspect]
     Active Substance: TESTOSTERONE
     Dosage: UNKNOWN
     Route: 065
     Dates: start: 200910, end: 201206

REACTIONS (7)
  - Anaemia [Unknown]
  - Cardio-respiratory arrest [Fatal]
  - Gastrointestinal haemorrhage [Unknown]
  - Dyspnoea [Unknown]
  - Haemorrhage [Unknown]
  - Pulmonary embolism [Unknown]
  - Hypovolaemia [Unknown]

NARRATIVE: CASE EVENT DATE: 20140317
